FAERS Safety Report 20839885 (Version 3)
Quarter: 2022Q2

REPORT INFORMATION
  Report Type: Spontaneous
  Country: US (occurrence: None)
  Receive Date: 20220517
  Receipt Date: 20220610
  Transmission Date: 20220721
  Serious: Yes (Death, Life-Threatening, Hospitalization, Other)
  Sender: FDA-Public Use
  Company Number: 2022A185265

PATIENT
  Age: 22119 Day
  Sex: Male
  Weight: 70.8 kg

DRUGS (33)
  1. EVUSHELD [Suspect]
     Active Substance: CILGAVIMAB\TIXAGEVIMAB
     Indication: Lung transplant
     Dosage: 150.0MG UNKNOWN
     Route: 030
     Dates: start: 20220204, end: 20220204
  2. BUDESONIDE [Suspect]
     Active Substance: BUDESONIDE
     Indication: Sinus disorder
     Dosage: 25 MG/2 ML
     Route: 055
  3. OMEPRAZOLE [Suspect]
     Active Substance: OMEPRAZOLE
     Indication: Hyperchlorhydria
     Dosage: 20.0MG UNKNOWN
     Route: 048
  4. PROGRAF [Concomitant]
     Active Substance: TACROLIMUS
     Indication: Product used for unknown indication
     Dosage: 1.5/1.0 MG
  5. PREDNISONE [Concomitant]
     Active Substance: PREDNISONE
     Indication: Product used for unknown indication
  6. ACYCLOVIR [Concomitant]
     Active Substance: ACYCLOVIR
     Indication: Herpes simplex
  7. AZITHROMYCIN [Concomitant]
     Active Substance: AZITHROMYCIN
     Indication: Product used for unknown indication
  8. DEXILANT [Concomitant]
     Active Substance: DEXLANSOPRAZOLE
     Indication: Product used for unknown indication
  9. OMEPRAZOLE [Concomitant]
     Active Substance: OMEPRAZOLE
     Indication: Product used for unknown indication
  10. PRAVASTATIN [Concomitant]
     Active Substance: PRAVASTATIN
  11. CREON [Concomitant]
     Active Substance: PANCRELIPASE AMYLASE\PANCRELIPASE LIPASE\PANCRELIPASE PROTEASE
     Indication: Product used for unknown indication
     Dosage: 4-5 CAPS
  12. ATOVAQUONE [Concomitant]
     Active Substance: ATOVAQUONE
     Indication: Antifungal prophylaxis
  13. OLANZAPINE [Concomitant]
     Active Substance: OLANZAPINE
     Indication: Affective disorder
  14. POTASSIUM [Concomitant]
     Active Substance: POTASSIUM
     Indication: Blood potassium abnormal
  15. POTASSIUM CITRATE [Concomitant]
     Active Substance: POTASSIUM CITRATE
     Indication: Blood potassium abnormal
  16. ELIQUIS [Concomitant]
     Active Substance: APIXABAN
     Indication: Cerebrovascular accident
  17. LASIX [Concomitant]
     Active Substance: FUROSEMIDE
     Indication: Product used for unknown indication
     Dosage: 20-60 MG
  18. MULTIVITAMIN D5000 [Concomitant]
     Indication: Hypovitaminosis
     Dosage: 1 CAP
  19. COPPER GLUCONATE [Concomitant]
     Active Substance: COPPER GLUCONATE
     Indication: Blood copper
  20. IRON [Concomitant]
     Active Substance: IRON
     Indication: Blood iron
     Dosage: 324 MG
  21. B-6 [Concomitant]
     Indication: Vitamin B6 abnormal
  22. NEUPOGEN [Concomitant]
     Active Substance: FILGRASTIM
     Indication: White blood cell count
  23. CAYSTON [Concomitant]
     Active Substance: AZTREONAM
  24. J AND J BABY SHAMPOO [Concomitant]
  25. MUPIROCIN [Concomitant]
     Active Substance: MUPIROCIN
     Dosage: 2%
  26. VANCOMYCIN [Concomitant]
     Active Substance: VANCOMYCIN
  27. CEFTRIAXONE [Concomitant]
     Active Substance: CEFTRIAXONE
     Dosage: 500/1000 M
  28. FLUTICASONE [Concomitant]
     Active Substance: FLUTICASONE
     Dosage: 1 SPRAY
  29. REGLAN [Concomitant]
     Active Substance: METOCLOPRAMIDE HYDROCHLORIDE
     Indication: Nausea
     Dosage: 5 MG/5 ML
  30. REGLAN [Concomitant]
     Active Substance: METOCLOPRAMIDE HYDROCHLORIDE
     Indication: Vomiting
     Dosage: 5 MG/5 ML
  31. DIPHENOX/ATROP [Concomitant]
     Indication: Diarrhoea
     Dosage: 2.5/0.025
  32. LEVITRA [Concomitant]
     Active Substance: VARDENAFIL HYDROCHLORIDE
     Indication: Product used for unknown indication
  33. LUNESTA [Concomitant]
     Active Substance: ESZOPICLONE
     Indication: Sleep disorder
     Dosage: 1-2 MG

REACTIONS (15)
  - Dyspnoea [Fatal]
  - Cerebral haemorrhage [Fatal]
  - Cerebral infarction [Fatal]
  - Aortic thrombosis [Fatal]
  - Splenic vein thrombosis [Fatal]
  - Cerebral thrombosis [Fatal]
  - Oxygen saturation decreased [Fatal]
  - Ascites [Unknown]
  - Cardiac valve vegetation [Unknown]
  - Splenic fibrosis [Unknown]
  - Splenic necrosis [Unknown]
  - Infection [Unknown]
  - Oedema peripheral [Unknown]
  - Feeling abnormal [Unknown]
  - Fatigue [Unknown]

NARRATIVE: CASE EVENT DATE: 20220204
